FAERS Safety Report 13325482 (Version 1)
Quarter: 2017Q1

REPORT INFORMATION
  Report Type: Spontaneous
  Country: US (occurrence: US)
  Receive Date: 20170310
  Receipt Date: 20170310
  Transmission Date: 20170428
  Serious: No
  Sender: FDA-Public Use
  Company Number: US-PERRIGO-16US021736

PATIENT
  Sex: Male
  Weight: 59.86 kg

DRUGS (2)
  1. TESTOSTERONE CYPIONATE. [Suspect]
     Active Substance: TESTOSTERONE CYPIONATE
     Dosage: 60 MG, WEEKLY
     Route: 030
     Dates: start: 201610
  2. TESTOSTERONE CYPIONATE. [Suspect]
     Active Substance: TESTOSTERONE CYPIONATE
     Indication: BLOOD TESTOSTERONE DECREASED
     Dosage: 60 MG, WEEKLY
     Route: 030
     Dates: start: 2015, end: 201610

REACTIONS (8)
  - Abdominal discomfort [Recovering/Resolving]
  - Fatigue [Recovering/Resolving]
  - Decreased appetite [Recovering/Resolving]
  - Off label use [Not Recovered/Not Resolved]
  - Nausea [Recovering/Resolving]
  - Confusional state [Recovering/Resolving]
  - Injection site pain [Recovering/Resolving]
  - Mood altered [Recovering/Resolving]

NARRATIVE: CASE EVENT DATE: 2015
